FAERS Safety Report 17024980 (Version 1)
Quarter: 2019Q4

REPORT INFORMATION
  Report Type: Spontaneous
  Country: US (occurrence: US)
  Receive Date: 20191113
  Receipt Date: 20191113
  Transmission Date: 20200122
  Serious: No
  Sender: FDA-Public Use
  Company Number: NVSC2019US032961

PATIENT
  Age: 60 Year
  Sex: Male

DRUGS (2)
  1. TRAMETINIB [Concomitant]
     Active Substance: TRAMETINIB
     Indication: CRANIOPHARYNGIOMA
     Dosage: 2 MG NIGHTLY
     Route: 065
  2. DABRAFENIB [Suspect]
     Active Substance: DABRAFENIB
     Indication: CRANIOPHARYNGIOMA
     Dosage: 150 MG, BID
     Route: 065

REACTIONS (1)
  - Seborrhoeic keratosis [Recovered/Resolved]
